FAERS Safety Report 8389098-6 (Version None)
Quarter: 2012Q2

REPORT INFORMATION
  Report Type: 
  Country: None (occurrence: None)
  Receive Date: 20120528
  Receipt Date: 20120521
  Transmission Date: 20120825
  Serious: Yes (Other)
  Sender: FDA-Public Use
  Company Number: PHHY2012BR035587

PATIENT
  Sex: Male
  Weight: 90 kg

DRUGS (2)
  1. FORMOTEROL FUMARATE [Suspect]
     Dosage: UNK (2 INHALATIONS OF EACH TREATMENT IN THE MORNING AND 2 INHALATION OF EACH TREATMENT AT NIGHT
  2. FORMOTEROL FUMARATE [Suspect]
     Indication: LUNG DISORDER
     Dosage: UNK (ONE INHALATION OF EACH TREATMENT AT NIGHT)

REACTIONS (4)
  - LUNG DISORDER [None]
  - INSOMNIA [None]
  - INCREASED BRONCHIAL SECRETION [None]
  - CARDIAC VALVE DISEASE [None]
